FAERS Safety Report 16290714 (Version 1)
Quarter: 2019Q2

REPORT INFORMATION
  Report Type: Spontaneous
  Country: NL (occurrence: NL)
  Receive Date: 20190509
  Receipt Date: 20190509
  Transmission Date: 20190711
  Serious: Yes (Other)
  Sender: FDA-Public Use
  Company Number: NL-TEVA-2019-NL-1046840

PATIENT
  Age: 56 Year
  Sex: Male
  Weight: 80 kg

DRUGS (4)
  1. METFORMINE HCL 500MG [Concomitant]
     Dosage: 2DD1
  2. LANTUS SOLOS [Concomitant]
  3. SIMVASTATINE FILMOMHULDE TABLET, 40 MG (MILLIGRAM) [Suspect]
     Active Substance: SIMVASTATIN
     Indication: HYPERCHOLESTEROLAEMIA
     Dosage: 1 TIME PER DAY
     Dates: start: 201812
  4. APIDRA SOLOS [Concomitant]

REACTIONS (2)
  - Hypoglycaemia [Recovered/Resolved]
  - Drug withdrawal syndrome [Recovered/Resolved]

NARRATIVE: CASE EVENT DATE: 20190330
